FAERS Safety Report 24052256 (Version 1)
Quarter: 2024Q3

REPORT INFORMATION
  Report Type: Spontaneous
  Country: US (occurrence: US)
  Receive Date: 20240704
  Receipt Date: 20240704
  Transmission Date: 20241016
  Serious: No
  Sender: MERCK
  Company Number: US-009507513-2406USA005952

PATIENT
  Sex: Male

DRUGS (2)
  1. KEYTRUDA [Suspect]
     Active Substance: PEMBROLIZUMAB
     Dosage: UNK UNK, Q3W
     Route: 042
  2. PREDNISONE [Suspect]
     Active Substance: PREDNISONE

REACTIONS (4)
  - Diarrhoea [Unknown]
  - Asthenia [Unknown]
  - Nausea [Unknown]
  - Malaise [Unknown]
